FAERS Safety Report 14340761 (Version 1)
Quarter: 2018Q1

REPORT INFORMATION
  Report Type: Spontaneous
  Country: US (occurrence: US)
  Receive Date: 20180101
  Receipt Date: 20180101
  Transmission Date: 20180509
  Serious: No
  Sender: FDA-Public Use
  Company Number: PHEH2017US042121

PATIENT
  Age: 62 Year
  Sex: Female

DRUGS (2)
  1. PREDNISONE TABLETS USP [Suspect]
     Active Substance: PREDNISONE
     Indication: DERMATOMYOSITIS
     Dosage: 20 MG, QD
     Route: 065
  2. MYCOPHENOLATE MOFETIL. [Suspect]
     Active Substance: MYCOPHENOLATE MOFETIL
     Indication: DERMATOMYOSITIS
     Dosage: 1 DF, BID
     Route: 065

REACTIONS (4)
  - Rash [Unknown]
  - Muscular weakness [Unknown]
  - Asthenia [Unknown]
  - Rash erythematous [Unknown]

NARRATIVE: CASE EVENT DATE: 201508
